FAERS Safety Report 6496776-2 (Version None)
Quarter: 2009Q4

REPORT INFORMATION
  Report Type: 
  Country: None (occurrence: None)
  Receive Date: 20091125
  Receipt Date: 20090720
  Transmission Date: 20100525
  Serious: Yes (Hospitalization)
  Sender: FDA-Public Use
  Company Number: 2009BH011664

PATIENT
  Age: 55 Year
  Sex: Female

DRUGS (20)
  1. DIANEAL [Suspect]
     Indication: PERITONEAL DIALYSIS
     Dosage: 12 L ; EVERY DAY ; IP
     Route: 033
     Dates: start: 20060101
  2. DIANEAL [Suspect]
     Indication: PERITONEAL DIALYSIS
     Dosage: 1.5 L ; EVERY DAY ; IP
     Route: 033
     Dates: start: 20060101
  3. NEPHRO-VITE RX [Concomitant]
  4. CALCITRIOL [Concomitant]
  5. CINACALCET [Concomitant]
  6. DIPHENHYDRAMINE [Concomitant]
  7. HYDROCHLORIDE [Concomitant]
  8. EPOETIN ALFA [Concomitant]
  9. FLAXSEED OIL [Concomitant]
  10. GENTAMICIN [Concomitant]
  11. NIFEREX FORTE [Concomitant]
  12. LORAZEPAM [Concomitant]
  13. MOMETASONE FUROATE [Concomitant]
  14. OMEPRAZOLE [Concomitant]
  15. POLYETHYLENE GLYCOL [Concomitant]
  16. RANITIDINE HYDROCHLORIDE [Concomitant]
  17. SEVELAMER HYDROCHLORIDE [Concomitant]
  18. WHEY [Concomitant]
  19. ELDERBERRY [Concomitant]
  20. FISH OIL [Concomitant]

REACTIONS (3)
  - ABDOMINAL DISCOMFORT [None]
  - CATHETER SITE RELATED REACTION [None]
  - PERITONITIS BACTERIAL [None]
